FAERS Safety Report 25980289 (Version 1)
Quarter: 2025Q4

REPORT INFORMATION
  Report Type: Spontaneous
  Country: EU (occurrence: EU)
  Receive Date: 20251030
  Receipt Date: 20251030
  Transmission Date: 20260118
  Serious: Yes (Disabling)
  Sender: FRESENIUS KABI
  Company Number: None

PATIENT
  Age: 72 Year
  Sex: Female
  Weight: 57 kg

DRUGS (2)
  1. PROPOFOL [Suspect]
     Active Substance: PROPOFOL
     Indication: General anaesthesia
     Route: 042
     Dates: start: 20250909, end: 20250909
  2. LIDOCAINE HYDROCHLORIDE [Concomitant]
     Active Substance: LIDOCAINE HYDROCHLORIDE
     Indication: Product used for unknown indication

REACTIONS (3)
  - Infusion site inflammation [Recovering/Resolving]
  - Motor dysfunction [Not Recovered/Not Resolved]
  - Infusion site extravasation [Recovered/Resolved]

NARRATIVE: CASE EVENT DATE: 20250909
